FAERS Safety Report 5671696-1 (Version None)
Quarter: 2008Q2

REPORT INFORMATION
  Report Type: 
  Country: None (occurrence: None)
  Receive Date: 20080229
  Receipt Date: 20071102
  Transmission Date: 20081010
  Serious: Yes (Other)
  Sender: FDA-Public Use
  Company Number: PHEH2007US12325

PATIENT
  Age: 19 Year

DRUGS (2)
  1. EXJADE [Suspect]
     Dosage: 1750 MG, QD, ORAL; QD, ORAL
     Route: 048
     Dates: end: 20070601
  2. EXJADE [Suspect]
     Dosage: 1750 MG, QD, ORAL; QD, ORAL
     Route: 048
     Dates: start: 20070601

REACTIONS (2)
  - ALANINE AMINOTRANSFERASE INCREASED [None]
  - TRANSAMINASES INCREASED [None]
